FAERS Safety Report 11412253 (Version 4)
Quarter: 2018Q4

REPORT INFORMATION
  Report Type: Spontaneous
  Country: US (occurrence: US)
  Receive Date: 20150824
  Receipt Date: 20181205
  Transmission Date: 20190204
  Serious: Yes (Life-Threatening, Hospitalization, Disabling, Other)
  Sender: FDA-Public Use
  Company Number: US-GLAXOSMITHKLINE-US2014007070

PATIENT
  Sex: Female
  Weight: 70.3 kg

DRUGS (6)
  1. ZYRTEC [Concomitant]
     Active Substance: CETIRIZINE HYDROCHLORIDE
  2. ADVAIR DISKUS [Suspect]
     Active Substance: FLUTICASONE PROPIONATE\SALMETEROL XINAFOATE
     Indication: ASTHMA
     Dosage: 1 PUFF(S), BID
     Route: 055
     Dates: start: 2000
  3. THEOPHYLLINE [Concomitant]
     Active Substance: THEOPHYLLINE ANHYDROUS
  4. ADVAIR DISKUS [Suspect]
     Active Substance: FLUTICASONE PROPIONATE\SALMETEROL XINAFOATE
     Indication: TRAUMATIC LUNG INJURY
  5. EPIPEN [Concomitant]
     Active Substance: EPINEPHRINE
  6. PROVENTIL HFA [Concomitant]
     Active Substance: ALBUTEROL SULFATE

REACTIONS (13)
  - Haematopoietic neoplasm [Unknown]
  - Lymphatic disorder [Unknown]
  - Hemiplegia [Recovered/Resolved]
  - Hypergammaglobulinaemia [Unknown]
  - Platelet count decreased [Unknown]
  - Skin cancer [Unknown]
  - Cerebrovascular accident [Recovered/Resolved]
  - Thrombocytopenia [Unknown]
  - Platelet count abnormal [Not Recovered/Not Resolved]
  - Blood disorder [Unknown]
  - Memory impairment [Not Recovered/Not Resolved]
  - White blood cell count decreased [Unknown]
  - Precancerous skin lesion [Unknown]

NARRATIVE: CASE EVENT DATE: 2011
